FAERS Safety Report 16688299 (Version 5)
Quarter: 2021Q1

REPORT INFORMATION
  Report Type: Spontaneous
  Country: US (occurrence: US)
  Receive Date: 20190809
  Receipt Date: 20210107
  Transmission Date: 20210419
  Serious: Yes (Hospitalization, Other)
  Sender: FDA-Public Use
  Company Number: US-PFIZER INC-2019337483

PATIENT
  Age: 80 Year
  Sex: Female
  Weight: 86.18 kg

DRUGS (3)
  1. SUTENT [Suspect]
     Active Substance: SUNITINIB MALATE
     Indication: GASTROINTESTINAL STROMAL TUMOUR
     Dosage: 50 MG, 1X/DAY
     Route: 048
  2. HYDROCHLOROTHIAZIDE/TRIAMTERENE [Concomitant]
     Active Substance: HYDROCHLOROTHIAZIDE\TRIAMTERENE
     Indication: HYPERTENSION
     Dosage: UNK, 1X/DAY (HYDROCHLOROTHIAZIDE 50MG/TRIAMTERENE 75MG)
     Route: 048
  3. SUTENT [Suspect]
     Active Substance: SUNITINIB MALATE
     Dosage: 50 MG, CYCLIC (1 CAPSULE DAILY FOR 28 DAYS THEN 14 DAYS OFF)
     Dates: start: 201907

REACTIONS (13)
  - Nausea [Unknown]
  - Rash [Not Recovered/Not Resolved]
  - Gastrointestinal haemorrhage [Recovering/Resolving]
  - Dry skin [Unknown]
  - Scab [Not Recovered/Not Resolved]
  - Pain in extremity [Recovering/Resolving]
  - Malaise [Unknown]
  - Paranasal sinus discomfort [Unknown]
  - Pain in jaw [Recovering/Resolving]
  - Haemoglobin decreased [Unknown]
  - Faeces discoloured [Recovering/Resolving]
  - Septic necrosis [Recovering/Resolving]
  - Skin exfoliation [Unknown]

NARRATIVE: CASE EVENT DATE: 20190726
